FAERS Safety Report 4889963-8 (Version None)
Quarter: 2006Q1

REPORT INFORMATION
  Report Type: 
  Country: None (occurrence: None)
  Receive Date: 20060124
  Receipt Date: 20051129
  Transmission Date: 20060701
  Serious: No
  Sender: FDA-Public Use
  Company Number: US-BRISTOL-MYERS SQUIBB COMPANY-13197595

PATIENT
  Age: 79 Year
  Sex: Female

DRUGS (1)
  1. METAGLIP [Suspect]
     Indication: DIABETES MELLITUS

REACTIONS (1)
  - INCORRECT DOSE ADMINISTERED [None]
